FAERS Safety Report 4736193-6 (Version None)
Quarter: 2005Q3

REPORT INFORMATION
  Report Type: 
  Country: None (occurrence: None)
  Receive Date: 20050806
  Receipt Date: 20050727
  Transmission Date: 20060218
  Serious: Yes (Hospitalization)
  Sender: FDA-Public Use
  Company Number: PHHO2005JP12012

PATIENT
  Age: 34 Year
  Sex: Male
  Weight: 102 kg

DRUGS (9)
  1. DIOVAN [Suspect]
     Indication: HYPERTENSION
     Dosage: 40 MG / DAY
     Route: 048
     Dates: start: 20030712, end: 20040708
  2. DIOVAN [Suspect]
     Dosage: 20 MG / DAY
     Route: 048
     Dates: start: 20040709
  3. LASIX [Suspect]
     Indication: HYPERTENSION
     Dosage: 20 MG / DAY
     Route: 048
     Dates: start: 20010701, end: 20040507
  4. LASIX [Suspect]
     Dosage: 60 MG / DAY
     Route: 048
     Dates: start: 20040507
  5. AMLODIN [Suspect]
     Indication: HYPERTENSION
     Dosage: 5 MG / DAY
     Route: 048
     Dates: start: 20030705, end: 20040513
  6. ASPIRIN [Suspect]
     Indication: MYOCARDIAL INFARCTION
     Dosage: 100 MG / DAY
     Route: 048
     Dates: start: 20050704
  7. LIPITOR [Suspect]
     Indication: HYPERCHOLESTEROLAEMIA
     Dosage: 5 MG / DAY
     Route: 048
     Dates: start: 20030709
  8. ALDACTONE [Suspect]
     Indication: CARDIAC FAILURE
     Dosage: 25 MG / DAY
     Route: 048
     Dates: start: 20040507
  9. WARFARIN POTASSIUM [Concomitant]
     Indication: ATRIAL FIBRILLATION
     Dosage: 1 MG, UNK
     Route: 048
     Dates: start: 20030605

REACTIONS (10)
  - ATRIAL FIBRILLATION [None]
  - CARDIAC FAILURE [None]
  - CHEST DISCOMFORT [None]
  - CHEST PAIN [None]
  - DYSPNOEA [None]
  - FLUID OVERLOAD [None]
  - MITRAL VALVE INCOMPETENCE [None]
  - OEDEMA PERIPHERAL [None]
  - PALPITATIONS [None]
  - PERIPHERAL COLDNESS [None]
